FAERS Safety Report 17075960 (Version 2)
Quarter: 2020Q1

REPORT INFORMATION
  Report Type: Spontaneous
  Country: US (occurrence: US)
  Receive Date: 20191126
  Receipt Date: 20200319
  Transmission Date: 20200409
  Serious: Yes (Other)
  Sender: FDA-Public Use
  Company Number: US-GILEAD-2019-0439485

PATIENT
  Age: 53 Year
  Sex: Male

DRUGS (25)
  1. TRUVADA [Suspect]
     Active Substance: EMTRICITABINE\TENOFOVIR DISOPROXIL FUMARATE
     Indication: HIV INFECTION
     Dosage: 1 DOSAGE FORM, QD
     Route: 048
     Dates: start: 20120822, end: 20160923
  2. VITAMIN C [Concomitant]
     Active Substance: ASCORBIC ACID
  3. RALTEGRAVIR. [Concomitant]
     Active Substance: RALTEGRAVIR
  4. LOVASTATIN. [Concomitant]
     Active Substance: LOVASTATIN
  5. EPIVIR [Concomitant]
     Active Substance: LAMIVUDINE
  6. ASPIRIN (E.C.) [Concomitant]
     Active Substance: ASPIRIN
  7. TOCOPHEROL [Concomitant]
     Active Substance: TOCOPHEROL
  8. HYDROCORTISONE. [Concomitant]
     Active Substance: HYDROCORTISONE
  9. HYDROCHLOROTHIAZIDE. [Concomitant]
     Active Substance: HYDROCHLOROTHIAZIDE
  10. VIREAD [Suspect]
     Active Substance: TENOFOVIR DISOPROXIL FUMARATE
     Indication: HIV INFECTION
     Dosage: UNK
     Route: 048
     Dates: start: 20070204, end: 201208
  11. LISINOPRIL. [Concomitant]
     Active Substance: LISINOPRIL
  12. BIKTARVY [Concomitant]
     Active Substance: BICTEGRAVIR SODIUM\EMTRICITABINE\TENOFOVIR ALAFENAMIDE FUMARATE
  13. POTASSIUM [Concomitant]
     Active Substance: POTASSIUM
  14. ZINC SULFATE. [Concomitant]
     Active Substance: ZINC SULFATE
  15. METFORMIN [Concomitant]
     Active Substance: METFORMIN HYDROCHLORIDE
  16. LONOX [Concomitant]
     Active Substance: ATROPINE SULFATE\DIPHENOXYLATE HYDROCHLORIDE
  17. AMLODIPINE [Concomitant]
     Active Substance: AMLODIPINE BESYLATE
  18. MILK THISTLE [SILYBUM MARIANUM] [Concomitant]
     Active Substance: DIETARY SUPPLEMENT\HERBALS\MILK THISTLE
  19. LOPERAMIDE [Concomitant]
     Active Substance: LOPERAMIDE
  20. KALETRA [Concomitant]
     Active Substance: LOPINAVIR\RITONAVIR
  21. GEMFIBROZIL. [Concomitant]
     Active Substance: GEMFIBROZIL
  22. DESCOVY [Concomitant]
     Active Substance: EMTRICITABINE\TENOFOVIR ALAFENAMIDE FUMARATE
  23. MULTIVITAMIN + MINERAL [Concomitant]
     Active Substance: MINERALS\VITAMINS
  24. ISENTRESS [Concomitant]
     Active Substance: RALTEGRAVIR POTASSIUM
  25. OSELTAMIVIR PHOSPHATE. [Concomitant]
     Active Substance: OSELTAMIVIR PHOSPHATE

REACTIONS (8)
  - Pain [Unknown]
  - Anxiety [Unknown]
  - Anhedonia [Unknown]
  - Osteoporosis [Not Recovered/Not Resolved]
  - Blood creatinine increased [Not Recovered/Not Resolved]
  - Osteopenia [Unknown]
  - Economic problem [Unknown]
  - Emotional distress [Unknown]

NARRATIVE: CASE EVENT DATE: 2016
